FAERS Safety Report 20017428 (Version 1)
Quarter: 2021Q4

REPORT INFORMATION
  Report Type: Report from Study
  Country: DE (occurrence: DE)
  Receive Date: 20211030
  Receipt Date: 20211030
  Transmission Date: 20220304
  Serious: Yes (Hospitalization)
  Sender: FDA-Public Use
  Company Number: DE-GETNE-2019DE-1206-002414

PATIENT
  Age: 48 Year
  Sex: Male

DRUGS (4)
  1. EVEROLIMUS [Suspect]
     Active Substance: EVEROLIMUS
     Indication: Pancreatic neuroendocrine tumour
     Dosage: 10 MILLIGRAM DAILY; 10 MG PER DAY
     Dates: start: 20180408, end: 20190921
  2. ACTRAPID [Concomitant]
     Active Substance: INSULIN HUMAN
     Indication: Diabetes mellitus
     Dosage: ACCORDING TO BZ VALUE
     Dates: start: 20160901
  3. PANCRELIPASE [Concomitant]
     Active Substance: PANCRELIPASE
     Indication: Pancreatectomy
     Dosage: 40000 IU (INTERNATIONAL UNIT) DAILY; 40,000 I.U. PER DAY:FORMSTRENGTH:40,000
     Dates: start: 20160101
  4. INSULIN GLARGINE [Concomitant]
     Active Substance: INSULIN GLARGINE
     Indication: Diabetes mellitus
     Dosage: 8 IU (INTERNATIONAL UNIT) DAILY; 8 I.U. PER DAY
     Dates: start: 20180614

REACTIONS (1)
  - Appendicitis [Not Recovered/Not Resolved]

NARRATIVE: CASE EVENT DATE: 20190917
